FAERS Safety Report 22033882 (Version 1)
Quarter: 2023Q1

REPORT INFORMATION
  Report Type: Spontaneous
  Country: JP (occurrence: JP)
  Receive Date: 20230224
  Receipt Date: 20230224
  Transmission Date: 20230417
  Serious: Yes (Other)
  Sender: FDA-Public Use
  Company Number: JP-UCBJ-CD202301952UCBPHAPROD

PATIENT
  Sex: Male

DRUGS (3)
  1. LEVETIRACETAM [Suspect]
     Active Substance: LEVETIRACETAM
     Indication: Product used for unknown indication
     Dosage: 3000 MILLIGRAM, ONCE DAILY (QD)
     Route: 048
  2. VIMPAT [Suspect]
     Active Substance: LACOSAMIDE
     Indication: Product used for unknown indication
     Dosage: 100 MILLIGRAM, 2X/DAY (BID)
     Route: 048
  3. VIMPAT [Suspect]
     Active Substance: LACOSAMIDE
     Dosage: 200 MILLIGRAM
     Route: 048

REACTIONS (3)
  - Epilepsy [Unknown]
  - Presbyopia [Unknown]
  - Dry eye [Unknown]
